FAERS Safety Report 8727077 (Version 4)
Quarter: 2014Q2

REPORT INFORMATION
  Report Type: Spontaneous
  Country: US (occurrence: US)
  Receive Date: 20120816
  Receipt Date: 20140408
  Transmission Date: 20141212
  Serious: Yes (Hospitalization)
  Sender: FDA-Public Use
  Company Number: US-B.I. PHARMACEUTICALS,INC./RIDGEFIELD-2012-BP-18786BP

PATIENT
  Age: 68 Year
  Sex: Male
  Weight: 65.77 kg

DRUGS (17)
  1. PRADAXA [Suspect]
     Indication: ATRIAL FIBRILLATION
     Dosage: 300 MG
     Route: 065
     Dates: start: 20110103, end: 20110128
  2. PRADAXA [Suspect]
     Indication: CEREBROVASCULAR ACCIDENT PROPHYLAXIS
  3. ASPIRIN [Suspect]
     Indication: CEREBROVASCULAR ACCIDENT PROPHYLAXIS
     Dosage: 81 MG
     Route: 065
     Dates: end: 20110128
  4. ALLOPURINOL [Concomitant]
     Dosage: 100 MG
     Route: 065
  5. NORVASC [Concomitant]
     Dosage: 5 MG
     Route: 065
  6. CALTRATE PLUS VITMAIN D [Concomitant]
     Route: 065
  7. PEPCID [Concomitant]
     Dosage: 20 MG
     Route: 065
  8. LASIX [Concomitant]
     Dosage: 20 MG
     Route: 065
  9. NEURONTIN [Concomitant]
     Dosage: 300 MG
     Route: 065
  10. LABETALOL [Concomitant]
     Dosage: 200 MG
     Route: 065
  11. KEPPRA [Concomitant]
     Dosage: 1000 MG
     Route: 065
  12. LISINOPRIL [Concomitant]
     Dosage: 10 MG
     Route: 065
  13. POTASSIUM CHLORIDE [Concomitant]
     Dosage: 10 MEQ
     Route: 065
  14. ZOLOFT [Concomitant]
     Dosage: 50 MG
     Route: 065
  15. SIMVASTATIN [Concomitant]
     Dosage: 10 MG
     Route: 065
  16. VALIUM [Concomitant]
     Route: 065
  17. LORTAB [Concomitant]
     Route: 065

REACTIONS (2)
  - Lower gastrointestinal haemorrhage [Recovered/Resolved]
  - Haemorrhagic anaemia [Recovered/Resolved]
